FAERS Safety Report 23803334 (Version 1)
Quarter: 2024Q2

REPORT INFORMATION
  Report Type: Spontaneous
  Country: US (occurrence: None)
  Receive Date: 20240430
  Receipt Date: 20240430
  Transmission Date: 20240716
  Serious: No
  Sender: FDA-Public Use
  Company Number: None

PATIENT
  Age: 69 Year
  Sex: Male

DRUGS (1)
  1. PROCRIT [Suspect]
     Active Substance: ERYTHROPOIETIN
     Indication: Chronic kidney disease
     Dosage: OTHER FREQUENCY : TWICE PER WEEK;?
     Route: 058
     Dates: start: 20240429

REACTIONS (2)
  - Nausea [None]
  - Chest pain [None]

NARRATIVE: CASE EVENT DATE: 20240429
